FAERS Safety Report 11794911 (Version 3)
Quarter: 2016Q2

REPORT INFORMATION
  Report Type: Spontaneous
  Country: US (occurrence: US)
  Receive Date: 20151202
  Receipt Date: 20160427
  Transmission Date: 20160815
  Serious: Yes (Hospitalization, Other)
  Sender: FDA-Public Use
  Company Number: US-BAYER-2015-474764

PATIENT
  Age: 21 Year
  Sex: Female
  Weight: 58.96 kg

DRUGS (1)
  1. MIRENA [Suspect]
     Active Substance: LEVONORGESTREL
     Indication: CONTRACEPTION
     Dosage: 20 MCG/24HR, CONT
     Route: 015
     Dates: start: 20040212, end: 20041124

REACTIONS (7)
  - Vaginal haemorrhage [Recovered/Resolved]
  - Pelvic pain [None]
  - Uterine perforation [None]
  - Back pain [None]
  - Post procedural haemorrhage [None]
  - Anxiety [None]
  - Depression [None]

NARRATIVE: CASE EVENT DATE: 200402
